FAERS Safety Report 9267196 (Version 2)
Quarter: 2013Q2

REPORT INFORMATION
  Report Type: Spontaneous
  Country: US (occurrence: US)
  Receive Date: 20130502
  Receipt Date: 20130619
  Transmission Date: 20140414
  Serious: Yes (Other)
  Sender: FDA-Public Use
  Company Number: US-PFIZER INC-2013135177

PATIENT
  Age: 50 Year
  Sex: Female
  Weight: 54.42 kg

DRUGS (8)
  1. LYRICA [Suspect]
     Indication: FIBROMYALGIA
     Dosage: 75 MG, 3X/DAY
     Route: 048
     Dates: end: 20130428
  2. LYRICA [Suspect]
     Indication: NEUROPATHY PERIPHERAL
     Dosage: 75 MG, 2X/DAY
     Route: 048
     Dates: start: 20130428
  3. LYRICA [Suspect]
     Dosage: 75 MG, 1X/DAY
     Route: 048
  4. NEXIUM [Concomitant]
     Indication: GASTROOESOPHAGEAL REFLUX DISEASE
     Dosage: 40 Q DAY
     Route: 048
  5. SYNTHROID [Concomitant]
     Dosage: 112 PER Q DAY
     Route: 048
  6. TRAMADOL [Concomitant]
     Indication: PAIN
     Dosage: 50 MG
  7. ZYRTEC [Concomitant]
     Dosage: UNK
  8. LISINOPRIL/HCTZ [Concomitant]
     Dosage: UNK

REACTIONS (2)
  - Hypokinesia [Unknown]
  - Malaise [Unknown]
